FAERS Safety Report 9288484 (Version 1)
Quarter: 2013Q2

REPORT INFORMATION
  Report Type: Spontaneous
  Country: PL (occurrence: PL)
  Receive Date: 20130514
  Receipt Date: 20130514
  Transmission Date: 20140414
  Serious: Yes (Hospitalization)
  Sender: FDA-Public Use
  Company Number: PHHY2013PL046391

PATIENT
  Age: 29 Year
  Sex: Male

DRUGS (1)
  1. DIGOXIN [Suspect]
     Dosage: 90 DF, (90 TABLETS) (TOTAL DOSE OF 22.5 MG)

REACTIONS (8)
  - Suicidal ideation [Recovering/Resolving]
  - Psychomotor skills impaired [Recovering/Resolving]
  - Balance disorder [Recovered/Resolved]
  - Toxicity to various agents [Recovering/Resolving]
  - Asthenia [Recovering/Resolving]
  - Pallor [Recovering/Resolving]
  - Heart rate irregular [Recovering/Resolving]
  - Vomiting [Recovering/Resolving]
